FAERS Safety Report 8494662-X (Version None)
Quarter: 2012Q3

REPORT INFORMATION
  Report Type: 
  Country: None (occurrence: None)
  Receive Date: 20120709
  Receipt Date: 20120702
  Transmission Date: 20120928
  Serious: Yes (Other)
  Sender: FDA-Public Use
  Company Number: PHHY2012IT057619

PATIENT
  Sex: Female

DRUGS (7)
  1. TICLOPIDINE HCL [Suspect]
     Indication: CARDIOVASCULAR DISORDER
     Dosage: 500 MG DAILY
     Route: 048
     Dates: start: 20110101, end: 20120614
  2. FLUTICASONE PROPIONATE/SALMETEROL [Concomitant]
     Indication: CHRONIC OBSTRUCTIVE PULMONARY DISEASE
  3. ROSUVASTATIN [Concomitant]
     Indication: HYPERCHOLESTEROLAEMIA
  4. IRBESARTAN [Concomitant]
  5. SPIRIVA [Concomitant]
     Indication: CHRONIC OBSTRUCTIVE PULMONARY DISEASE
  6. PERIDON [Concomitant]
     Indication: NAUSEA
  7. GAVISCON [Concomitant]
     Indication: DYSPEPSIA

REACTIONS (2)
  - BLOOD PRESSURE INCREASED [None]
  - HAEMOPTYSIS [None]
